FAERS Safety Report 14239336 (Version 1)
Quarter: 2017Q4

REPORT INFORMATION
  Report Type: Spontaneous
  Country: US (occurrence: None)
  Receive Date: 20171129
  Receipt Date: 20171129
  Transmission Date: 20180321
  Serious: Yes (Other)
  Sender: FDA-Public Use
  Company Number: None

PATIENT
  Age: 64 Year
  Sex: Female
  Weight: 48.99 kg

DRUGS (1)
  1. MAVYRET [Suspect]
     Active Substance: GLECAPREVIR\PIBRENTASVIR
     Indication: CHRONIC HEPATITIS C
     Dosage: 100/40 - 3 TABLETS EVERY DAY ORALLY
     Route: 048
     Dates: start: 20171113

REACTIONS (2)
  - Productive cough [None]
  - Haemoptysis [None]

NARRATIVE: CASE EVENT DATE: 20171129
